FAERS Safety Report 14712981 (Version 1)
Quarter: 2018Q2

REPORT INFORMATION
  Report Type: Spontaneous
  Country: US (occurrence: US)
  Receive Date: 20180404
  Receipt Date: 20180404
  Transmission Date: 20180711
  Serious: Yes (Hospitalization, Other)
  Sender: FDA-Public Use
  Company Number: US-009507513-1804USA000229

PATIENT
  Age: 61 Year
  Sex: Female
  Weight: 64.4 kg

DRUGS (2)
  1. VICTOZA [Suspect]
     Active Substance: LIRAGLUTIDE
     Indication: TYPE 2 DIABETES MELLITUS
     Dosage: 1.8 MG, QD
     Route: 058
     Dates: start: 2016
  2. JANUVIA [Suspect]
     Active Substance: SITAGLIPTIN PHOSPHATE
     Indication: TYPE 2 DIABETES MELLITUS
     Dosage: UNK
     Route: 048
     Dates: start: 2014, end: 20180225

REACTIONS (8)
  - Loss of consciousness [Recovered/Resolved]
  - Blood magnesium decreased [Unknown]
  - Nausea [Unknown]
  - Pancreatic enzymes normal [Unknown]
  - Vomiting [Recovered/Resolved]
  - Blood potassium decreased [Unknown]
  - Muscle spasms [Recovered/Resolved]
  - Cholelithiasis [Unknown]

NARRATIVE: CASE EVENT DATE: 201712
